FAERS Safety Report 6298908-8 (Version None)
Quarter: 2009Q3

REPORT INFORMATION
  Report Type: 
  Country: None (occurrence: None)
  Receive Date: 20090804
  Receipt Date: 20090724
  Transmission Date: 20100115
  Serious: Yes (Other)
  Sender: FDA-Public Use
  Company Number: 338828

PATIENT
  Age: 17 Year
  Sex: Female

DRUGS (2)
  1. TOBRAMYCIN [Suspect]
     Indication: ANTIBIOTIC THERAPY
     Dosage: 3.25 MG/KG, 3 DAY, INTRAVENOUS
     Route: 042
  2. COLISTIN SULFATE [Suspect]
     Indication: ANTIBIOTIC THERAPY
     Dosage: UNKNOWN, UNKNOWN, INHLATATION
     Route: 055

REACTIONS (2)
  - CONTINUOUS HAEMODIAFILTRATION [None]
  - RENAL FAILURE ACUTE [None]
